FAERS Safety Report 8786161 (Version 1)
Quarter: 2012Q4

REPORT INFORMATION
  Report Type: 
  Country: US (occurrence: US)
  Receive Date: 20120914
  Receipt Date: 20120914
  Transmission Date: 20130627
  Serious: Yes (Other)
  Sender: FDA-Public Use
  Company Number: US-BAXTER-2012BAX016713

PATIENT
  Age: 9 Month
  Sex: Male

DRUGS (4)
  1. GAMMAGARD LIQUID [Suspect]
     Indication: KAWASAKI^S DISEASE
     Route: 042
  2. CEFTRIAXONE [Suspect]
     Indication: DRUG USE FOR UNKNOWN INDICATION
     Route: 042
  3. ASPIRIN [Concomitant]
     Indication: KAWASAKI^S DISEASE
  4. OXACILLIN [Concomitant]
     Indication: DRUG USE FOR UNKNOWN INDICATION

REACTIONS (3)
  - Haemolysis [Recovered/Resolved]
  - Serum sickness [Recovered/Resolved]
  - Disseminated intravascular coagulation [Recovered/Resolved]
